FAERS Safety Report 13755103 (Version 1)
Quarter: 2017Q3

REPORT INFORMATION
  Report Type: Report from Study
  Country: US (occurrence: US)
  Receive Date: 20170714
  Receipt Date: 20170714
  Transmission Date: 20171127
  Serious: Yes (Other)
  Sender: FDA-Public Use
  Company Number: US-CIPLA LTD.-2017US12094

PATIENT

DRUGS (2)
  1. CAPECITABINE. [Interacting]
     Active Substance: CAPECITABINE
     Indication: NEOPLASM OF THYMUS
     Dosage: 1000 MG/M, BID, DAY 1 TO DAY 14
     Route: 065
  2. CELECOXIB. [Suspect]
     Active Substance: CELECOXIB
     Indication: NEOPLASM OF THYMUS
     Dosage: 200 MG, BID, DAY 1 TO DAY 14
     Route: 065

REACTIONS (2)
  - Drug interaction [Unknown]
  - Palmar-plantar erythrodysaesthesia syndrome [Unknown]
